FAERS Safety Report 4305957-5 (Version None)
Quarter: 2004Q1

REPORT INFORMATION
  Report Type: 
  Country: None (occurrence: None)
  Receive Date: 20040225
  Receipt Date: 20040204
  Transmission Date: 20041129
  Serious: Yes (Hospitalization)
  Sender: FDA-Public Use
  Company Number: 2004GB00323

PATIENT
  Age: 63 Year
  Sex: Male

DRUGS (5)
  1. TENORMIN [Suspect]
     Dosage: 25 MG QD PO   A FEW DAYS
     Route: 048
  2. ASPIRIN [Concomitant]
  3. TEMAZEPAM [Concomitant]
  4. STREPTOKINASE [Concomitant]
  5. PERINDOPRIL [Concomitant]

REACTIONS (1)
  - CUTANEOUS VASCULITIS [None]
